FAERS Safety Report 13516610 (Version 2)
Quarter: 2017Q4

REPORT INFORMATION
  Report Type: Spontaneous
  Country: US (occurrence: US)
  Receive Date: 20170505
  Receipt Date: 20171124
  Transmission Date: 20180320
  Serious: Yes (Other)
  Sender: FDA-Public Use
  Company Number: US-ASTRAZENECA-2017SE46084

PATIENT
  Sex: Female

DRUGS (15)
  1. FUROSEMIDE. [Concomitant]
     Active Substance: FUROSEMIDE
     Dosage: 40.0MG UNKNOWN
     Route: 048
     Dates: start: 20040315
  2. PAXIL [Concomitant]
     Active Substance: PAROXETINE HYDROCHLORIDE
     Dosage: 30.0MG UNKNOWN
     Route: 048
     Dates: start: 20040324
  3. SKELAXIN [Concomitant]
     Active Substance: METAXALONE
     Dosage: 800.0MG UNKNOWN
     Route: 048
     Dates: start: 20040324
  4. KADIAN [Concomitant]
     Active Substance: MORPHINE SULFATE
     Dosage: 60.0MG UNKNOWN
     Route: 048
     Dates: start: 20041122
  5. ATACAND [Concomitant]
     Active Substance: CANDESARTAN CILEXETIL
     Dosage: 32.0MG UNKNOWN
     Route: 048
     Dates: start: 20040917
  6. NEXIUM [Suspect]
     Active Substance: ESOMEPRAZOLE MAGNESIUM
     Indication: GASTRIC PH DECREASED
     Route: 048
     Dates: start: 2004, end: 2016
  7. ALPRAZOLAM. [Concomitant]
     Active Substance: ALPRAZOLAM
     Dosage: 25.0MG UNKNOWN
     Route: 048
     Dates: start: 20040324
  8. BUPROPION. [Concomitant]
     Active Substance: BUPROPION
     Dosage: 150.0MG UNKNOWN
     Route: 048
     Dates: start: 20040816
  9. METFORMIN [Concomitant]
     Active Substance: METFORMIN HYDROCHLORIDE
     Dosage: 500.0MG UNKNOWN
     Route: 048
     Dates: start: 20040716
  10. OXYCODONE [Concomitant]
     Active Substance: OXYCODONE
     Dosage: 325.0MG UNKNOWN
     Route: 048
     Dates: start: 20040324
  11. NEXIUM [Suspect]
     Active Substance: ESOMEPRAZOLE MAGNESIUM
     Indication: GASTRIC PH DECREASED
     Dosage: 40.0MG UNKNOWN
     Route: 048
     Dates: start: 20040324
  12. PROMETHAZINE [Concomitant]
     Active Substance: PROMETHAZINE\PROMETHAZINE HYDROCHLORIDE
     Dosage: 50.0MG UNKNOWN
     Route: 048
     Dates: start: 20040324
  13. AMBIEN [Concomitant]
     Active Substance: ZOLPIDEM TARTRATE
     Dosage: 10.0MG UNKNOWN
     Route: 048
     Dates: start: 20040324
  14. METHADONE [Concomitant]
     Active Substance: METHADONE HYDROCHLORIDE
     Dosage: 10.0MG UNKNOWN
     Route: 048
     Dates: start: 20040324
  15. CEPHALEXIN. [Concomitant]
     Active Substance: CEPHALEXIN
     Dosage: 500.0MG UNKNOWN
     Route: 048
     Dates: start: 20050209

REACTIONS (5)
  - Chronic kidney disease [Unknown]
  - End stage renal disease [Unknown]
  - Renal failure [Unknown]
  - Tubulointerstitial nephritis [Unknown]
  - Acute kidney injury [Unknown]
